FAERS Safety Report 5962601-9 (Version None)
Quarter: 2008Q4

REPORT INFORMATION
  Report Type: 
  Country: None (occurrence: None)
  Receive Date: 20081121
  Receipt Date: 20081113
  Transmission Date: 20090506
  Serious: Yes (Other)
  Sender: FDA-Public Use
  Company Number: US-PFIZER INC-2008096536

PATIENT
  Sex: Female
  Weight: 79.09 kg

DRUGS (12)
  1. XALATAN [Suspect]
     Indication: GLAUCOMA
     Route: 047
     Dates: start: 20070101
  2. DIOVAN [Concomitant]
  3. NITROSTAT [Concomitant]
  4. ACETYLSALICYLIC ACID SRT [Concomitant]
  5. PLAVIX [Concomitant]
  6. PLAQUINOL [Concomitant]
  7. POTASSIUM CHLORIDE [Concomitant]
  8. ALTACE [Concomitant]
  9. ZETIA [Concomitant]
  10. ATENOLOL [Concomitant]
  11. NORVASC [Concomitant]
  12. ALL OTHER THERAPEUTIC PRODUCTS [Concomitant]

REACTIONS (3)
  - CARDIAC DISORDER [None]
  - MEDICATION ERROR [None]
  - VISUAL ACUITY REDUCED [None]
